FAERS Safety Report 9629336 (Version 3)
Quarter: 2013Q4

REPORT INFORMATION
  Report Type: Report from Study
  Country: US (occurrence: US)
  Receive Date: 20131017
  Receipt Date: 20131203
  Transmission Date: 20140711
  Serious: Yes (Life-Threatening, Hospitalization)
  Sender: FDA-Public Use
  Company Number: US-MERCK-1310USA005907

PATIENT
  Age: 48 Year
  Sex: Female
  Weight: 65 kg

DRUGS (6)
  1. VORINOSTAT [Suspect]
     Indication: ACUTE MYELOID LEUKAEMIA
     Dosage: UNK
     Route: 048
     Dates: start: 20130405, end: 20130407
  2. VORINOSTAT [Suspect]
     Dosage: UNK
     Route: 048
     Dates: start: 20131007, end: 20131009
  3. CYTARABINE [Suspect]
     Indication: ACUTE MYELOID LEUKAEMIA
     Dosage: 1500 MG/M2, QD, CONTINOUS IV INFUSION ON DAYS 4-7 INDUCTION AND RE-INDUCTION (CYCLE=28 DAYS)
     Route: 042
     Dates: start: 20130408, end: 20130410
  4. CYTARABINE [Suspect]
     Dosage: 750 MG/M2, QD, CONTINOUS IV INFUSION ON DAYS 4-7 INDUCTION AND RE-INDUCTION (CYCLE=28 DAYS)
     Route: 042
     Dates: start: 20131011, end: 20131013
  5. IDARUBICIN [Suspect]
     Indication: ACUTE MYELOID LEUKAEMIA
     Dosage: 12 MG/M2, QD IV OVER 15 MIN ON DAYS 4-6 INDUCTION AND REINDUCTION (CYCLE=28 DAYS)
     Route: 042
     Dates: start: 20130408, end: 20130410
  6. IDARUBICIN [Suspect]
     Dosage: 8 MG/M2, QD IV OVER 15 MIN ON DAYS 4-6 INDUCTION AND REINDUCTION (CYCLE=28 DAYS)
     Route: 042
     Dates: start: 20131011, end: 20131012

REACTIONS (3)
  - Aspartate aminotransferase increased [Recovered/Resolved with Sequelae]
  - Alanine aminotransferase increased [Recovered/Resolved with Sequelae]
  - Confusional state [Recovered/Resolved with Sequelae]
